FAERS Safety Report 21513546 (Version 6)
Quarter: 2025Q1

REPORT INFORMATION
  Report Type: Report from Study
  Country: BR (occurrence: BR)
  Receive Date: 20221027
  Receipt Date: 20250213
  Transmission Date: 20250408
  Serious: Yes (Hospitalization, Other)
  Sender: GLAXOSMITHKLINE
  Company Number: BR-GLAXOSMITHKLINE-BR2021AMR080069

PATIENT

DRUGS (4)
  1. MEPOLIZUMAB [Suspect]
     Active Substance: MEPOLIZUMAB
     Indication: Asthma
     Dosage: 100 MG/ML, Q4W
     Dates: start: 20210127, end: 20210804
  2. MEPOLIZUMAB [Suspect]
     Active Substance: MEPOLIZUMAB
     Indication: Asthma
     Dosage: 100 MG, Q4W
     Route: 058
  3. ALBUTEROL [Suspect]
     Active Substance: ALBUTEROL
     Indication: Product used for unknown indication
  4. COVID-19 VACCINE [Concomitant]
     Indication: COVID-19 prophylaxis

REACTIONS (19)
  - Bacterial infection [Unknown]
  - Influenza [Unknown]
  - Feeling abnormal [Unknown]
  - Bronchial obstruction [Unknown]
  - Pneumonia [Recovered/Resolved]
  - Cystic fibrosis [Unknown]
  - Dyspnoea [Recovered/Resolved]
  - Hypersensitivity [Unknown]
  - Cough [Recovered/Resolved]
  - Illness [Unknown]
  - Aphonia [Recovered/Resolved]
  - Fatigue [Recovered/Resolved]
  - Sleep disorder due to a general medical condition [Recovered/Resolved]
  - Productive cough [Recovered/Resolved]
  - Secretion discharge [Recovered/Resolved]
  - Oropharyngeal pain [Recovered/Resolved]
  - Exposure during pregnancy [Recovered/Resolved]
  - Inappropriate schedule of product administration [Unknown]
  - Product dose omission issue [Unknown]

NARRATIVE: CASE EVENT DATE: 20211201
